FAERS Safety Report 5918067-8 (Version None)
Quarter: 2008Q4

REPORT INFORMATION
  Report Type: 
  Country: None (occurrence: None)
  Receive Date: 20081014
  Receipt Date: 20081002
  Transmission Date: 20090506
  Serious: Yes (Hospitalization)
  Sender: FDA-Public Use
  Company Number: US-WYE-H06243808

PATIENT
  Sex: Female

DRUGS (5)
  1. PRISTIQ [Suspect]
     Indication: DEPRESSION
     Route: 048
  2. ATENOLOL [Concomitant]
     Indication: HYPERTENSION
     Dosage: 25 MG, FREQUENCY UNKNOWN
     Route: 048
  3. TRILEPTAL [Concomitant]
     Indication: CONVULSION
     Dosage: 300 MG, FREQUENCY UNKNOWN
     Route: 048
  4. CELEXA [Concomitant]
     Indication: DEPRESSION
     Route: 048
  5. TRAZODONE HCL [Concomitant]
     Indication: PSYCHOTIC DISORDER
     Dosage: 150 MG, FREQUENCY UNKNOWN
     Route: 048

REACTIONS (2)
  - CHEST PAIN [None]
  - HYPONATRAEMIA [None]
